FAERS Safety Report 6467039-6 (Version None)
Quarter: 2009Q4

REPORT INFORMATION
  Report Type: 
  Country: None (occurrence: None)
  Receive Date: 20091202
  Receipt Date: 20081219
  Transmission Date: 20100525
  Serious: No
  Sender: FDA-Public Use
  Company Number: US-AMGEN-KDL325051

PATIENT
  Sex: Female
  Weight: 133.9 kg

DRUGS (10)
  1. ENBREL [Suspect]
     Indication: RHEUMATOID ARTHRITIS
     Route: 058
     Dates: start: 20030123
  2. ENBREL [Suspect]
     Indication: DRUG USE FOR UNKNOWN INDICATION
  3. ALLEGRA [Concomitant]
     Dates: start: 20030501
  4. ALBUTEROL [Concomitant]
     Dates: start: 20030501
  5. PREVACID [Concomitant]
     Dates: start: 20061001
  6. IBUPROFEN [Concomitant]
     Dates: start: 20070101
  7. XANAX [Concomitant]
     Dates: start: 20050401
  8. TRAZODONE HCL [Concomitant]
     Dates: start: 20080501
  9. VICODIN [Concomitant]
     Dates: start: 20081001
  10. ULTRAM [Concomitant]
     Dates: start: 20070101

REACTIONS (4)
  - BLOOD GLUCOSE ABNORMAL [None]
  - BLOOD TEST ABNORMAL [None]
  - HEPATIC ENZYME ABNORMAL [None]
  - WEIGHT INCREASED [None]
